FAERS Safety Report 18367120 (Version 2)
Quarter: 2021Q1

REPORT INFORMATION
  Report Type: Report from Study
  Country: PL (occurrence: PL)
  Receive Date: 20201009
  Receipt Date: 20210210
  Transmission Date: 20210419
  Serious: Yes (Hospitalization, Other)
  Sender: FDA-Public Use
  Company Number: PL-EXELIXIS-XL18420033527

PATIENT
  Age: 64 Year
  Sex: Male

DRUGS (12)
  1. FINASTERIDE. [Concomitant]
     Active Substance: FINASTERIDE
  2. PARACETAMOL [Concomitant]
     Active Substance: ACETAMINOPHEN
  3. TIZANIDINE. [Concomitant]
     Active Substance: TIZANIDINE
  4. XL184 [Suspect]
     Active Substance: CABOZANTINIB
     Dosage: UNK
     Route: 048
     Dates: start: 20201023
  5. NIVOLUMAB [Suspect]
     Active Substance: NIVOLUMAB
     Dosage: 3 MG/KG, Q3WEEKS, 4 DOSES
     Route: 042
     Dates: start: 20201030
  6. TRAMADOL. [Concomitant]
     Active Substance: TRAMADOL
  7. FENTANYL. [Concomitant]
     Active Substance: FENTANYL
  8. XL184 [Suspect]
     Active Substance: CABOZANTINIB
     Indication: RENAL CELL CARCINOMA
     Dosage: 40 MG, QD
     Route: 048
     Dates: start: 20200918
  9. IPILIMUMAB [Suspect]
     Active Substance: IPILIMUMAB
     Dosage: 1 MG/KG, Q3WEEKS, 4 DOSES
     Route: 042
     Dates: start: 20201030
  10. TAMSULOSIN [Concomitant]
     Active Substance: TAMSULOSIN
  11. IPILIMUMAB [Suspect]
     Active Substance: IPILIMUMAB
     Indication: RENAL CELL CARCINOMA
     Dosage: 1 MG/KG, Q3WEEKS, 4 DOSES
     Route: 042
     Dates: start: 20200918
  12. NIVOLUMAB [Suspect]
     Active Substance: NIVOLUMAB
     Indication: RENAL CELL CARCINOMA
     Dosage: 3 MG/KG, Q3WEEKS, 4 DOSES
     Route: 042
     Dates: start: 20200918

REACTIONS (3)
  - COVID-19 [Recovered/Resolved]
  - Pyrexia [Recovered/Resolved]
  - Ageusia [Recovered/Resolved]

NARRATIVE: CASE EVENT DATE: 20200924
